FAERS Safety Report 23406358 (Version 1)
Quarter: 2024Q1

REPORT INFORMATION
  Report Type: Spontaneous
  Country: US (occurrence: US)
  Receive Date: 20240116
  Receipt Date: 20240116
  Transmission Date: 20240410
  Serious: No
  Sender: FDA-Public Use
  Company Number: US-ALXN-202401USA000777US

PATIENT

DRUGS (1)
  1. SOLIRIS [Suspect]
     Active Substance: ECULIZUMAB
     Indication: Atypical haemolytic uraemic syndrome
     Dosage: UNK
     Route: 065

REACTIONS (18)
  - Neuralgia [Unknown]
  - Pain [Unknown]
  - Disturbance in attention [Unknown]
  - Eye pain [Unknown]
  - Joint lock [Unknown]
  - Blood pressure increased [Unknown]
  - Abnormal sensation in eye [Unknown]
  - Photophobia [Unknown]
  - Disorientation [Unknown]
  - Brain fog [Unknown]
  - Temperature regulation disorder [Unknown]
  - Paraesthesia [Unknown]
  - Feeling hot [Unknown]
  - Dizziness [Unknown]
  - Muscle spasms [Unknown]
  - Headache [Unknown]
  - Chills [Unknown]
  - Nausea [Unknown]
